FAERS Safety Report 9504791 (Version 1)
Quarter: 2013Q3

REPORT INFORMATION
  Report Type: Report from Study
  Country: GR (occurrence: GR)
  Receive Date: 20130906
  Receipt Date: 20130906
  Transmission Date: 20140515
  Serious: Yes (Hospitalization)
  Sender: FDA-Public Use
  Company Number: GR-ELI_LILLY_AND_COMPANY-GR201308009221

PATIENT
  Age: 76 Year
  Sex: Male
  Weight: 73.02 kg

DRUGS (4)
  1. GEMZAR [Suspect]
     Indication: PANCREATIC CARCINOMA METASTATIC
     Dosage: UNK
     Dates: start: 20130312
  2. TEMSIROLIMUS [Suspect]
     Indication: PANCREATIC CARCINOMA METASTATIC
     Dosage: UNK
     Dates: start: 20130312
  3. MICARDIS [Concomitant]
     Indication: HYPERTENSION
     Dosage: UNK
  4. MESULID [Concomitant]
     Indication: PARANEOPLASTIC SYNDROME
     Dosage: 0.5 MG, QD
     Dates: start: 20130423, end: 20130504

REACTIONS (1)
  - Pneumonia [Recovered/Resolved]
